FAERS Safety Report 17554268 (Version 1)
Quarter: 2020Q1

REPORT INFORMATION
  Report Type: Spontaneous
  Country: US (occurrence: US)
  Receive Date: 20200309
  Receipt Date: 20200309
  Transmission Date: 20200409
  Serious: Yes (Life-Threatening, Hospitalization)
  Sender: FDA-Public Use
  Company Number: None

PATIENT
  Age: 46 Year
  Sex: Male
  Weight: 77.11 kg

DRUGS (4)
  1. CALCIUM [Concomitant]
     Active Substance: CALCIUM
  2. MULTI VITAMIN SUPLAMENT [Concomitant]
  3. PENICILLIN VK 500MG TABLET [Suspect]
     Active Substance: PENICILLIN V POTASSIUM
     Indication: TOOTHACHE
     Dosage: ?          QUANTITY:15 DF DOSAGE FORM;?
     Route: 048
     Dates: start: 20190702, end: 20190702
  4. PENICILLIN VK 500MG TABLET [Suspect]
     Active Substance: PENICILLIN V POTASSIUM
     Indication: TOOTH INFECTION
     Dosage: ?          QUANTITY:15 DF DOSAGE FORM;?
     Route: 048
     Dates: start: 20190702, end: 20190702

REACTIONS (5)
  - Near death experience [None]
  - Product contamination [None]
  - Product label on wrong product [None]
  - Product odour abnormal [None]
  - Hypersensitivity [None]

NARRATIVE: CASE EVENT DATE: 20190702
